FAERS Safety Report 4436849-9 (Version None)
Quarter: 2004Q3

REPORT INFORMATION
  Report Type: 
  Country: None (occurrence: None)
  Receive Date: 20040830
  Receipt Date: 20040818
  Transmission Date: 20050211
  Serious: Yes (Other)
  Sender: FDA-Public Use
  Company Number: US-ROCHE-378149

PATIENT
  Sex: Male

DRUGS (2)
  1. PEGASYS [Suspect]
     Indication: DRUG USE FOR UNKNOWN INDICATION
     Route: 058
     Dates: start: 20031115
  2. COPEGUS [Suspect]
     Indication: DRUG USE FOR UNKNOWN INDICATION
     Route: 048
     Dates: start: 20031115

REACTIONS (7)
  - CHEST PAIN [None]
  - DYSPNOEA [None]
  - HEADACHE [None]
  - HOT FLUSH [None]
  - INFLUENZA LIKE ILLNESS [None]
  - INTESTINAL FUNCTIONAL DISORDER [None]
  - PANCYTOPENIA [None]
